FAERS Safety Report 8928000 (Version 1)
Quarter: 2012Q4

REPORT INFORMATION
  Report Type: Spontaneous
  Country: US (occurrence: None)
  Receive Date: 20121126
  Receipt Date: 20121126
  Transmission Date: 20130627
  Serious: Yes (Other)
  Sender: FDA-Public Use
  Company Number: None

PATIENT
  Age: 55 Year
  Sex: Female
  Weight: 70.31 kg

DRUGS (1)
  1. DEXTROAMPHETAMINE 5 MG PILLS SAY 952 5 AND B OTHER SIDE [Suspect]
     Dosage: three tab 2x/day
     Route: 048
     Dates: start: 20121020, end: 20121119

REACTIONS (2)
  - Product substitution issue [None]
  - Product measured potency issue [None]
